FAERS Safety Report 5316883-7 (Version None)
Quarter: 2007Q2

REPORT INFORMATION
  Report Type: 
  Country: None (occurrence: None)
  Receive Date: 20070504
  Receipt Date: 20070502
  Transmission Date: 20071010
  Serious: Yes (Other)
  Sender: FDA-Public Use
  Company Number: US-GLAXOSMITHKLINE-A0649735A

PATIENT
  Sex: Male

DRUGS (2)
  1. WELLBUTRIN [Suspect]
     Route: 048
     Dates: start: 20070412
  2. BUPROPION HYDROCHLORIDE [Suspect]
     Route: 048
     Dates: start: 20070426

REACTIONS (5)
  - HENOCH-SCHONLEIN PURPURA [None]
  - OFF LABEL USE [None]
  - RASH [None]
  - SKIN LESION [None]
  - STEVENS-JOHNSON SYNDROME [None]
